FAERS Safety Report 7056939-4 (Version None)
Quarter: 2010Q4

REPORT INFORMATION
  Report Type: 
  Country: None (occurrence: None)
  Receive Date: 20101021
  Receipt Date: 20101021
  Transmission Date: 20110411
  Serious: Yes (Hospitalization)
  Sender: FDA-Public Use
  Company Number: None

PATIENT
  Sex: Male
  Weight: 79.2 kg

DRUGS (2)
  1. AZACITIDINE [Suspect]
     Indication: ACUTE MYELOID LEUKAEMIA
     Dosage: AZACITIDINE 75MG/M2 QD S/C
     Route: 058
  2. LENALIDOMIDE [Suspect]
     Dosage: LENALIDOMIDE 5 MG QD PO
     Route: 048

REACTIONS (6)
  - CHILLS [None]
  - CONSTIPATION [None]
  - COUGH [None]
  - FEBRILE NEUTROPENIA [None]
  - PNEUMONIA [None]
  - RHINORRHOEA [None]
